FAERS Safety Report 18305639 (Version 1)
Quarter: 2020Q3

REPORT INFORMATION
  Report Type: Spontaneous
  Country: CN (occurrence: CN)
  Receive Date: 20200923
  Receipt Date: 20200923
  Transmission Date: 20201103
  Serious: Yes (Other)
  Sender: FDA-Public Use
  Company Number: CN-009507513-2009CHN007904

PATIENT
  Age: 50 Year
  Sex: Female
  Weight: 50 kg

DRUGS (1)
  1. ZEPATIER [Suspect]
     Active Substance: ELBASVIR\GRAZOPREVIR
     Indication: HEPATITIS C
     Dosage: 1 PILL, QD, PO, TABLET
     Route: 048
     Dates: start: 20200724, end: 20200817

REACTIONS (3)
  - Myalgia [Unknown]
  - Postmenopausal haemorrhage [Unknown]
  - Arthralgia [Unknown]

NARRATIVE: CASE EVENT DATE: 20200805
